FAERS Safety Report 13417076 (Version 1)
Quarter: 2017Q2

REPORT INFORMATION
  Report Type: Spontaneous
  Country: GB (occurrence: GB)
  Receive Date: 20170407
  Receipt Date: 20170407
  Transmission Date: 20170830
  Serious: Yes (Other)
  Sender: FDA-Public Use
  Company Number: GB-MEDA-2017040005

PATIENT
  Sex: Male
  Weight: 3.49 kg

DRUGS (5)
  1. CHLORPROMAZINE. [Suspect]
     Active Substance: CHLORPROMAZINE
     Indication: AGITATION
     Route: 064
  2. ZOLPIDEM [Suspect]
     Active Substance: ZOLPIDEM\ZOLPIDEM TARTRATE
     Indication: INSOMNIA
     Dosage: 10 MG NOCTE
     Route: 064
  3. TRAMADOL. [Suspect]
     Active Substance: TRAMADOL
     Dosage: UNQUANTIFIED ILLICIT TRAMADOL USE
     Route: 064
  4. CITALOPRAM [Suspect]
     Active Substance: CITALOPRAM HYDROBROMIDE
     Indication: DEPRESSION
     Route: 064
  5. CODEINE PHOSPHATE [Suspect]
     Active Substance: CODEINE PHOSPHATE
     Route: 064

REACTIONS (8)
  - Vomiting [Unknown]
  - Drug withdrawal syndrome neonatal [Unknown]
  - Respiratory distress [Unknown]
  - Poor feeding infant [Unknown]
  - Irritability [Unknown]
  - Foetal exposure during pregnancy [Unknown]
  - Hypoglycaemia [Unknown]
  - Gastrointestinal disorder [Unknown]
